FAERS Safety Report 8238965-2 (Version None)
Quarter: 2012Q1

REPORT INFORMATION
  Report Type: 
  Country: None (occurrence: None)
  Receive Date: 20120327
  Receipt Date: 20120319
  Transmission Date: 20120608
  Serious: Yes (Hospitalization)
  Sender: FDA-Public Use
  Company Number: JP-VERTEX PHARMACEUTICALS INC.-AE-2012-004102

PATIENT
  Age: 65 Year
  Sex: Female

DRUGS (10)
  1. REBETOL [Concomitant]
     Indication: HEPATITIS C
     Route: 048
     Dates: start: 20120125, end: 20120228
  2. REBETOL [Concomitant]
     Route: 048
     Dates: start: 20120229
  3. FEROTYM [Concomitant]
     Route: 048
  4. LIVALO [Concomitant]
     Route: 048
  5. TELAVIC (TELAPREVIR) [Suspect]
     Indication: HEPATITIS C
     Route: 048
     Dates: start: 20120125
  6. PEGINTERFERON [Concomitant]
     Route: 058
     Dates: start: 20120225
  7. CLARITIN REDITABS [Concomitant]
     Route: 048
  8. PEGINTERFERON [Concomitant]
     Indication: HEPATITIS C
     Route: 058
     Dates: start: 20120125, end: 20120215
  9. PURSENNID [Concomitant]
     Route: 048
  10. EPADEL [Concomitant]
     Route: 048

REACTIONS (1)
  - RASH [None]
